FAERS Safety Report 12544018 (Version 1)
Quarter: 2016Q3

REPORT INFORMATION
  Report Type: Spontaneous
  Country: US (occurrence: None)
  Receive Date: 20160708
  Receipt Date: 20160708
  Transmission Date: 20161109
  Serious: Yes (Hospitalization)
  Sender: FDA-Public Use
  Company Number: None

PATIENT
  Age: 78 Year
  Sex: Male

DRUGS (11)
  1. FERROUS SULFATE. [Concomitant]
     Active Substance: FERROUS SULFATE
  2. ATOVAQUONE. [Suspect]
     Active Substance: ATOVAQUONE
     Indication: PLASMA CELL MYELOMA
     Dosage: 10ML (150MG) ONE TIME DAILY ORAL
     Route: 048
     Dates: start: 20160203
  3. COZAAR [Concomitant]
     Active Substance: LOSARTAN POTASSIUM
  4. FINASTERIDE. [Concomitant]
     Active Substance: FINASTERIDE
  5. OMEPRAZOLE. [Concomitant]
     Active Substance: OMEPRAZOLE
  6. ACYCLOVIR. [Concomitant]
     Active Substance: ACYCLOVIR
  7. LORATADINE. [Concomitant]
     Active Substance: LORATADINE
  8. VITAMIN B12 [Concomitant]
     Active Substance: CYANOCOBALAMIN
  9. COUMADIN [Concomitant]
     Active Substance: WARFARIN SODIUM
  10. ALBUTEROL. [Concomitant]
     Active Substance: ALBUTEROL
  11. ATROVENT HFA [Concomitant]
     Active Substance: IPRATROPIUM BROMIDE

REACTIONS (2)
  - Neoplasm malignant [None]
  - Gastrointestinal disorder [None]

NARRATIVE: CASE EVENT DATE: 20160227
